FAERS Safety Report 5460428-8 (Version None)
Quarter: 2007Q3

REPORT INFORMATION
  Report Type: 
  Country: None (occurrence: None)
  Receive Date: 20070919
  Receipt Date: 20070709
  Transmission Date: 20080115
  Serious: Yes (Other)
  Sender: FDA-Public Use
  Company Number: US-ASTRAZENECA-2007UW16180

PATIENT
  Age: 6 Year
  Sex: Male

DRUGS (7)
  1. SEROQUEL [Suspect]
     Route: 048
     Dates: start: 20070607, end: 20070611
  2. SEROQUEL [Suspect]
     Route: 048
     Dates: start: 20070612, end: 20070613
  3. SEROQUEL [Suspect]
     Route: 048
     Dates: start: 20070614, end: 20070617
  4. SEROQUEL [Suspect]
     Route: 048
     Dates: start: 20070618, end: 20070623
  5. SEROQUEL [Suspect]
     Route: 048
     Dates: start: 20070624
  6. DEPAKOTE ER [Concomitant]
  7. HALDOL [Concomitant]

REACTIONS (1)
  - DYSTONIA [None]
